FAERS Safety Report 24809583 (Version 1)
Quarter: 2025Q1

REPORT INFORMATION
  Report Type: Spontaneous
  Country: US (occurrence: None)
  Receive Date: 20250103
  Receipt Date: 20250103
  Transmission Date: 20250409
  Serious: Yes (unspecified)
  Sender: FDA-CTU
  Company Number: None

PATIENT
  Age: 52 Year
  Sex: Male

DRUGS (1)
  1. OTEZLA [Suspect]
     Active Substance: APREMILAST
     Dosage: FREQUENCY : TWICE A DAY;?

REACTIONS (6)
  - Migraine [None]
  - Eye haemorrhage [None]
  - Dizziness [None]
  - Vomiting [None]
  - Vision blurred [None]
  - Drug ineffective [None]
